FAERS Safety Report 7005944-2 (Version None)
Quarter: 2010Q3

REPORT INFORMATION
  Report Type: 
  Country: None (occurrence: None)
  Receive Date: 20100921
  Receipt Date: 20100908
  Transmission Date: 20110219
  Serious: Yes (Hospitalization)
  Sender: FDA-Public Use
  Company Number: US-ELI_LILLY_AND_COMPANY-US200607001248

PATIENT
  Age: 37 Year
  Sex: Male

DRUGS (6)
  1. CYMBALTA [Interacting]
     Indication: DEPRESSION
     Dosage: 1 D/F, AS NEEDED
     Route: 048
     Dates: start: 20040101, end: 20040101
  2. CYMBALTA [Interacting]
     Dosage: 60 MG, DAILY (1/D)
     Route: 048
     Dates: start: 20060101, end: 20060101
  3. FLUOXETINE HYDROCHLORIDE [Suspect]
     Dosage: 80 MG, DAILY (1/D)
  4. ABILIFY [Concomitant]
     Indication: BIPOLAR DISORDER
     Dosage: 15 MG, DAILY (1/D)
  5. ALCOHOL [Concomitant]
     Dosage: UNK, UNKNOWN
     Route: 048
  6. LEVOTHYROXIN 0.05 MG KSA [Concomitant]
     Dosage: 250 UG, DAILY (1/D)

REACTIONS (6)
  - ACUTE HEPATIC FAILURE [None]
  - DRUG INTERACTION [None]
  - MEAN CELL HAEMOGLOBIN [None]
  - MEAN CELL VOLUME ABNORMAL [None]
  - NAUSEA [None]
  - RENAL FAILURE [None]
